FAERS Safety Report 24908240 (Version 3)
Quarter: 2025Q1

REPORT INFORMATION
  Report Type: Spontaneous
  Country: HU (occurrence: HU)
  Receive Date: 20250131
  Receipt Date: 20250226
  Transmission Date: 20250408
  Serious: Yes (Other)
  Sender: NOVO NORDISK
  Company Number: HU-NOVOPROD-1356686

PATIENT
  Age: 59 Year
  Sex: Female
  Weight: 75 kg

DRUGS (6)
  1. OZEMPIC [Suspect]
     Active Substance: SEMAGLUTIDE
     Indication: Type 2 diabetes mellitus
     Dosage: 0.5 MG, QW (COUNTED CLICKS)
  2. OZEMPIC [Suspect]
     Active Substance: SEMAGLUTIDE
     Indication: Type 2 diabetes mellitus
     Dosage: 0.5 MG, QW
  3. METFORMIN [Concomitant]
     Active Substance: METFORMIN HYDROCHLORIDE
     Indication: Product used for unknown indication
     Dosage: 2000 MG, QD
  4. AMLODIPINE BESYLATE\PERINDOPRIL ARGININE [Concomitant]
     Active Substance: AMLODIPINE BESYLATE\PERINDOPRIL ARGININE
     Indication: Hypertension
  5. ELIQUIS [Concomitant]
     Active Substance: APIXABAN
     Indication: Hypertension
  6. BISOPROLOL FUMARATE [Concomitant]
     Active Substance: BISOPROLOL FUMARATE
     Indication: Hypertension

REACTIONS (3)
  - Hepatic fibrosis [Not Recovered/Not Resolved]
  - Wrong technique in product usage process [Unknown]
  - Product availability issue [Unknown]

NARRATIVE: CASE EVENT DATE: 20250114
